FAERS Safety Report 5384035-0 (Version None)
Quarter: 2007Q3

REPORT INFORMATION
  Report Type: 
  Country: None (occurrence: None)
  Receive Date: 20070711
  Receipt Date: 20070703
  Transmission Date: 20080115
  Serious: Yes (Hospitalization)
  Sender: FDA-Public Use
  Company Number: DE-ASTRAZENECA-2007PK01380

PATIENT
  Age: 18 Year
  Sex: Male
  Weight: 52 kg

DRUGS (16)
  1. OMEPRAZOLE [Suspect]
  2. PROGRAF [Interacting]
     Indication: IMMUNOSUPPRESSANT DRUG THERAPY
     Dates: start: 20041201
  3. THEOPHYLLINE [Interacting]
     Indication: OBLITERATIVE BRONCHIOLITIS
  4. RIFA [Interacting]
     Indication: TUBERCULOSIS
  5. ZITHROMAX [Interacting]
  6. SEREVENT [Concomitant]
     Indication: OBLITERATIVE BRONCHIOLITIS
  7. FLUTIDE [Concomitant]
     Indication: OBLITERATIVE BRONCHIOLITIS
  8. ALBUTEROL [Concomitant]
     Indication: OBLITERATIVE BRONCHIOLITIS
  9. COTRIM [Concomitant]
  10. CIPROFLOXACIN HCL [Concomitant]
  11. VALCYTE [Concomitant]
  12. DIFLUCAN [Concomitant]
  13. LASIX [Concomitant]
     Dosage: EVERY EIGHTEEN HOURS
  14. ALLOPURINOL [Concomitant]
  15. VORICONAZOLE [Concomitant]
     Indication: TUBERCULOSIS
  16. ACC [Concomitant]

REACTIONS (2)
  - DRUG INTERACTION [None]
  - IMMUNOSUPPRESSANT DRUG LEVEL INCREASED [None]
